FAERS Safety Report 11593922 (Version 3)
Quarter: 2016Q1

REPORT INFORMATION
  Report Type: Spontaneous
  Country: GB (occurrence: GB)
  Receive Date: 20151005
  Receipt Date: 20160311
  Transmission Date: 20160525
  Serious: Yes (Other)
  Sender: FDA-Public Use
  Company Number: GB-TEVA-597164ACC

PATIENT
  Age: 66 Year
  Sex: Female

DRUGS (10)
  1. LIOTHYRONINE SODIUM. [Suspect]
     Active Substance: LIOTHYRONINE SODIUM
     Indication: THYROID DISORDER
     Dosage: 20 MCG IN THE MORNING
  2. LIOTHYRONINE SODIUM. [Suspect]
     Active Substance: LIOTHYRONINE SODIUM
     Dosage: HALF TABLET
  3. LEVOTHYROXINE. [Suspect]
     Active Substance: LEVOTHYROXINE
     Indication: THYROID DISORDER
     Dosage: 100 MCG
  4. LEVOTHYROXINE. [Suspect]
     Active Substance: LEVOTHYROXINE
  5. LEVOTHYROXINE. [Suspect]
     Active Substance: LEVOTHYROXINE
     Dosage: 50 MCG (FIRST IN THE MORNING)
  6. LEVOTHYROXINE. [Suspect]
     Active Substance: LEVOTHYROXINE
  7. LEVOTHYROXINE. [Suspect]
     Active Substance: LEVOTHYROXINE
  8. LIOTHYRONINE SODIUM. [Suspect]
     Active Substance: LIOTHYRONINE SODIUM
     Dosage: TOOK 1 TABLET
  9. HYDROCORTISONE. [Suspect]
     Active Substance: HYDROCORTISONE
     Indication: THYROID DISORDER
     Dosage: 15 MG (10 MG IN MORNING, 5 MG AT LUNCH TIME)
  10. HYDROCORTISONE. [Suspect]
     Active Substance: HYDROCORTISONE
     Dosage: 20 MG IN MORNING, 10 MG AT LUNCH TIME

REACTIONS (18)
  - Cardiac failure [Recovered/Resolved]
  - Body temperature decreased [Recovered/Resolved]
  - Feeling cold [Recovered/Resolved]
  - Overweight [Recovered/Resolved]
  - Arrhythmia [Recovered/Resolved]
  - Incorrect dose administered [Unknown]
  - Wrong technique in product usage process [Unknown]
  - Off label use [Unknown]
  - Restlessness [Recovered/Resolved]
  - Blood pressure decreased [Recovered/Resolved]
  - Oedema [Recovering/Resolving]
  - Dyspnoea [Recovered/Resolved]
  - Urine output decreased [Recovered/Resolved]
  - Abasia [Recovered/Resolved]
  - Activities of daily living impaired [Recovered/Resolved]
  - Heart rate decreased [Recovered/Resolved]
  - Malaise [Recovered/Resolved]
  - Alopecia [Recovered/Resolved]

NARRATIVE: CASE EVENT DATE: 20151220
